FAERS Safety Report 4821519-5 (Version None)
Quarter: 2005Q4

REPORT INFORMATION
  Report Type: 
  Country: None (occurrence: None)
  Receive Date: 20051107
  Receipt Date: 20051025
  Transmission Date: 20060501
  Serious: Yes (Hospitalization)
  Sender: FDA-Public Use
  Company Number: FR-AVENTIS-200513524FR

PATIENT
  Age: 75 Year
  Sex: Female

DRUGS (2)
  1. OFLOCET [Suspect]
     Indication: SIGMOIDITIS
     Route: 048
     Dates: start: 20050812, end: 20050816
  2. FLAGYL [Suspect]
     Indication: SIGMOIDITIS
     Route: 048
     Dates: start: 20050812, end: 20050819

REACTIONS (7)
  - ACUTE GENERALISED EXANTHEMATOUS PUSTULOSIS [None]
  - CIRRHOSIS ALCOHOLIC [None]
  - CYTOLYTIC HEPATITIS [None]
  - DIARRHOEA [None]
  - HEPATIC FUNCTION ABNORMAL [None]
  - RASH [None]
  - RENAL IMPAIRMENT [None]
